FAERS Safety Report 9006589 (Version 1)
Quarter: 2012Q4

REPORT INFORMATION
  Report Type: Spontaneous
  Country: US (occurrence: None)
  Receive Date: 20121227
  Receipt Date: 20121227
  Transmission Date: 20130627
  Serious: Yes (Other)
  Sender: FDA-Public Use
  Company Number: 2012SP004990

PATIENT
  Age: 62 Year
  Sex: Female

DRUGS (7)
  1. FLUOROURACIL (FLUOROURACIL) [Suspect]
     Indication: LOBULAR BREAST CARCINOMA INVASIVE
  2. DOXORUBICIN (DOXORUBICIN) (DOXORUBICIN) [Suspect]
     Indication: LOBULAR BREAST CARCINOMA INVASIVE
  3. PACLITAXEL (PACLITAXEL) [Suspect]
     Indication: LOBULAR BREAST CARCINOMA INVASIVE
  4. CYCLOPHOSPHAMIDE [Suspect]
     Indication: LOBULAR BREAST CARCINOMA INVASIVE
  5. TAMOXIFEN [Concomitant]
  6. ANASTRAZOLE [Concomitant]
  7. EXEMESTANE [Concomitant]

REACTIONS (2)
  - Second primary malignancy [None]
  - Myelodysplastic syndrome [None]
